FAERS Safety Report 8019825-9 (Version None)
Quarter: 2012Q1

REPORT INFORMATION
  Report Type: 
  Country: None (occurrence: None)
  Receive Date: 20120103
  Receipt Date: 20111219
  Transmission Date: 20120608
  Serious: Yes (Hospitalization)
  Sender: FDA-Public Use
  Company Number: GB-ARROW GEN-2011-22227

PATIENT
  Age: 80 Year
  Sex: Female

DRUGS (6)
  1. TRIMETHOPRIM [Concomitant]
     Dosage: 200 MG, BID
     Route: 048
     Dates: start: 20111017, end: 20111023
  2. TRIMETHOPRIM [Concomitant]
     Dosage: 200 MG, BID
     Route: 048
     Dates: start: 20110919, end: 20110925
  3. NITROFURAN [Concomitant]
     Indication: PRODUCT USED FOR UNKNOWN INDICATION
     Dosage: 50 MG, QID
     Route: 048
     Dates: start: 20111026, end: 20111031
  4. MIRTAZAPINE [Suspect]
     Indication: DEPRESSION
     Dosage: 15 MG, DAILY
     Route: 048
     Dates: start: 20110802, end: 20111031
  5. TPN [Concomitant]
     Indication: PRODUCT USED FOR UNKNOWN INDICATION
     Dosage: 30 ML, TID
     Route: 048
     Dates: start: 20111027
  6. TRIMETHOPRIM [Concomitant]
     Indication: PRODUCT USED FOR UNKNOWN INDICATION
     Dosage: 200 MG, BID
     Route: 048
     Dates: start: 20110714, end: 20110720

REACTIONS (4)
  - NEUTROPHIL COUNT DECREASED [None]
  - HAEMOGLOBIN DECREASED [None]
  - PLATELET COUNT DECREASED [None]
  - WHITE BLOOD CELL COUNT DECREASED [None]
